FAERS Safety Report 7797478-2 (Version None)
Quarter: 2011Q4

REPORT INFORMATION
  Report Type: 
  Country: None (occurrence: None)
  Receive Date: 20111005
  Receipt Date: 20110927
  Transmission Date: 20120403
  Serious: Yes (Hospitalization)
  Sender: FDA-Public Use
  Company Number: US-BAYER-201031654GPV

PATIENT
  Age: 55 Year
  Sex: Male
  Weight: 109 kg

DRUGS (4)
  1. OXYCONTIN [Concomitant]
  2. SORAFENIB (RAF KINASE INHIBITOR) [Suspect]
     Indication: HEPATIC NEOPLASM MALIGNANT
     Dosage: 400 MG, BID
     Route: 048
     Dates: start: 20100208, end: 20100408
  3. DOCUSATE SODIUM [Concomitant]
  4. CRAD001O VS PLACEBO [Suspect]
     Indication: HEPATIC NEOPLASM MALIGNANT
     Dates: start: 20100208

REACTIONS (4)
  - VOMITING [None]
  - ABDOMINAL PAIN [None]
  - INTESTINAL DILATATION [None]
  - SMALL INTESTINAL OBSTRUCTION [None]
